FAERS Safety Report 6722752-8 (Version None)
Quarter: 2010Q2

REPORT INFORMATION
  Report Type: 
  Country: None (occurrence: None)
  Receive Date: 20100511
  Receipt Date: 20100427
  Transmission Date: 20101027
  Serious: Yes (Congenital Anomaly)
  Sender: FDA-Public Use
  Company Number: 1000013702

PATIENT

DRUGS (2)
  1. ESCITALOPRAM [Suspect]
     Dosage: TRANSPLACENTAL
     Route: 064
  2. FOLIC ACID [Concomitant]

REACTIONS (3)
  - ANAL ATRESIA [None]
  - CHOANAL ATRESIA [None]
  - MATERNAL DRUGS AFFECTING FOETUS [None]
